FAERS Safety Report 7394808-0 (Version None)
Quarter: 2011Q2

REPORT INFORMATION
  Report Type: 
  Country: None (occurrence: None)
  Receive Date: 20110405
  Receipt Date: 20110325
  Transmission Date: 20111010
  Serious: Yes (Hospitalization)
  Sender: FDA-Public Use
  Company Number: A0773182A

PATIENT
  Age: 58 Year
  Sex: Male
  Weight: 95 kg

DRUGS (6)
  1. IRON [Concomitant]
  2. AMARYL [Concomitant]
  3. NEXIUM [Concomitant]
  4. AXID [Concomitant]
  5. AVANDIA [Suspect]
     Indication: DIABETES MELLITUS
     Dosage: 4MG PER DAY
     Route: 048
     Dates: start: 19991025, end: 20060701
  6. PRILOSEC [Concomitant]

REACTIONS (1)
  - MYOCARDIAL INFARCTION [None]
